FAERS Safety Report 4910531-3 (Version None)
Quarter: 2006Q1

REPORT INFORMATION
  Report Type: 
  Country: None (occurrence: None)
  Receive Date: 20060214
  Receipt Date: 20060130
  Transmission Date: 20060701
  Serious: Yes (Hospitalization)
  Sender: FDA-Public Use
  Company Number: JP-ROCHE-434886

PATIENT
  Age: 74 Year
  Sex: Male

DRUGS (8)
  1. TAMIFLU [Suspect]
     Route: 048
     Dates: start: 20060123, end: 20060127
  2. CLARITHROMYCIN [Concomitant]
     Route: 048
  3. GASTER D [Concomitant]
     Route: 048
  4. MICARDIS [Concomitant]
     Route: 048
  5. ASPIRIN [Concomitant]
     Route: 048
  6. DIART [Concomitant]
     Route: 048
  7. ACECOL [Concomitant]
     Route: 048
  8. EURODIN [Concomitant]
     Route: 048

REACTIONS (2)
  - EPISTAXIS [None]
  - PLATELET COUNT DECREASED [None]
